FAERS Safety Report 4845319-5 (Version None)
Quarter: 2005Q4

REPORT INFORMATION
  Report Type: 
  Country: None (occurrence: None)
  Receive Date: 20051205
  Receipt Date: 20051122
  Transmission Date: 20060501
  Serious: Yes (Hospitalization)
  Sender: FDA-Public Use
  Company Number: FR-GLAXOSMITHKLINE-B0401447A

PATIENT
  Age: 85 Year
  Sex: Female

DRUGS (6)
  1. DEROXAT [Suspect]
     Route: 048
     Dates: start: 20051012, end: 20051024
  2. LEVOTHYROX [Concomitant]
     Dosage: 125MCG PER DAY
     Route: 048
  3. DIFFU K [Concomitant]
     Dosage: 2UNIT PER DAY
     Route: 048
  4. ADALAT [Concomitant]
     Dosage: 10MG THREE TIMES PER DAY
     Route: 048
  5. DITROPAN [Concomitant]
     Route: 048
  6. TERCIAN [Concomitant]
     Dosage: 50MG SINGLE DOSE
     Route: 030

REACTIONS (11)
  - ABNORMAL BEHAVIOUR [None]
  - AGITATION [None]
  - ANXIETY [None]
  - ATRIAL FIBRILLATION [None]
  - CONFUSIONAL STATE [None]
  - CONVERSION DISORDER [None]
  - DEHYDRATION [None]
  - DRY MOUTH [None]
  - HEPATOCELLULAR DAMAGE [None]
  - OVERDOSE [None]
  - RENAL FAILURE [None]
